FAERS Safety Report 24774477 (Version 1)
Quarter: 2024Q4

REPORT INFORMATION
  Report Type: Spontaneous
  Country: US (occurrence: US)
  Receive Date: 20241225
  Receipt Date: 20241225
  Transmission Date: 20250114
  Serious: No
  Sender: JOHNSON AND JOHNSON
  Company Number: US-KENVUE-20241206365

PATIENT
  Sex: Female

DRUGS (4)
  1. TYLENOL [Suspect]
     Active Substance: ACETAMINOPHEN
     Indication: Migraine
  2. NURTEC ODT [Concomitant]
     Active Substance: RIMEGEPANT SULFATE
     Indication: Migraine
     Dosage: 75 MILLIGRAM
     Dates: start: 20220727
  3. IMITREX [Concomitant]
     Active Substance: SUMATRIPTAN SUCCINATE
     Indication: Migraine
     Dosage: UNK
     Dates: start: 20230203
  4. BENADRYL [Concomitant]
     Active Substance: DIPHENHYDRAMINE HYDROCHLORIDE
     Indication: Migraine

REACTIONS (1)
  - Exposure during pregnancy [Unknown]
